FAERS Safety Report 8641946 (Version 6)
Quarter: 2012Q4

REPORT INFORMATION
  Report Type: 
  Country: US (occurrence: US)
  Receive Date: 20120628
  Receipt Date: 20121022
  Transmission Date: 20130627
  Serious: Yes (Other)
  Sender: FDA-Public Use
  Company Number: US-ACTELION-A-US2012-60536

PATIENT
  Age: 61 Year
  Sex: Female

DRUGS (8)
  1. VENTAVIS [Suspect]
     Indication: PULMONARY ARTERIAL HYPERTENSION
     Dosage: UNK, x6/day
     Route: 055
     Dates: start: 20111031
  2. VENTAVIS [Suspect]
     Dosage: 5 mcg, UNK
     Route: 055
     Dates: start: 20111107, end: 20120707
  3. TRACLEER [Suspect]
     Indication: PULMONARY ARTERIAL HYPERTENSION
     Dosage: 125 mg, bid
     Route: 048
     Dates: start: 20090715
  4. PLAVIX [Concomitant]
  5. ASPIRIN [Concomitant]
  6. VITAMIN D [Concomitant]
  7. OMEGA 3 [Concomitant]
  8. CELEXA [Concomitant]

REACTIONS (15)
  - Irritable bowel syndrome [Recovering/Resolving]
  - Haematochezia [Recovering/Resolving]
  - Diarrhoea [Recovering/Resolving]
  - Gastrointestinal disorder [Recovering/Resolving]
  - Retching [Recovering/Resolving]
  - Dizziness [Unknown]
  - Abdominal discomfort [Recovering/Resolving]
  - Condition aggravated [Recovering/Resolving]
  - Nausea [Recovering/Resolving]
  - Abdominal pain [Recovering/Resolving]
  - Mucous stools [Recovering/Resolving]
  - Rectal haemorrhage [Recovering/Resolving]
  - Abdominal pain upper [Recovering/Resolving]
  - Vomiting [Recovering/Resolving]
  - Reflux gastritis [Recovering/Resolving]
